FAERS Safety Report 17555283 (Version 1)
Quarter: 2020Q1

REPORT INFORMATION
  Report Type: Spontaneous
  Country: US (occurrence: US)
  Receive Date: 20200310
  Receipt Date: 20200310
  Transmission Date: 20200409
  Serious: No
  Sender: FDA-Public Use
  Company Number: None

PATIENT

DRUGS (2)
  1. ORAL SYRINGE [Suspect]
     Active Substance: DEVICE
  2. MORPHINE [Suspect]
     Active Substance: MORPHINE

REACTIONS (5)
  - Device connection issue [None]
  - Accidental exposure to product [None]
  - Wrong product administered [None]
  - Product selection error [None]
  - Incorrect route of product administration [None]
